FAERS Safety Report 13393812 (Version 2)
Quarter: 2017Q2

REPORT INFORMATION
  Report Type: Spontaneous
  Country: FR (occurrence: FR)
  Receive Date: 20170331
  Receipt Date: 20170405
  Transmission Date: 20170830
  Serious: Yes (Hospitalization)
  Sender: FDA-Public Use
  Company Number: PHHY2017FR046380

PATIENT
  Age: 68 Year
  Sex: Female

DRUGS (10)
  1. DOLIPRANE [Concomitant]
     Active Substance: ACETAMINOPHEN
     Indication: BACK PAIN
     Dosage: 500 MG, UNK
     Route: 065
     Dates: start: 20170118
  2. DIAMICRON [Suspect]
     Active Substance: GLICLAZIDE
     Indication: TYPE 2 DIABETES MELLITUS
     Dosage: 60 MG, QD
     Route: 048
     Dates: start: 20150905
  3. BI PROFENID [Concomitant]
     Active Substance: KETOPROFEN
     Indication: BACK PAIN
     Dosage: 100 MG, UNK
     Route: 065
     Dates: start: 20170109, end: 20170117
  4. IXPRIM [Suspect]
     Active Substance: ACETAMINOPHEN\TRAMADOL HYDROCHLORIDE
     Indication: BACK PAIN
     Dosage: 1 DF, QD
     Route: 048
     Dates: start: 20170118, end: 20170125
  5. LUMIRELAX [Suspect]
     Active Substance: METHOCARBAMOL
     Indication: MUSCLE TWITCHING
     Dosage: 500 MG, BID
     Route: 048
     Dates: start: 20170109, end: 20170125
  6. GALVUS [Suspect]
     Active Substance: VILDAGLIPTIN
     Indication: TYPE 2 DIABETES MELLITUS
     Dosage: 500 MG, BID
     Route: 048
     Dates: start: 201008, end: 20170207
  7. VOLTARENE [Suspect]
     Active Substance: DICLOFENAC SODIUM
     Indication: INFLAMMATORY PAIN
     Dosage: 75 MG, BID
     Route: 048
     Dates: start: 20170118, end: 20170125
  8. BAUME AROMA [Concomitant]
     Indication: BACK PAIN
     Dosage: UNK
     Route: 065
     Dates: start: 20170109, end: 20170110
  9. TENORMIN [Suspect]
     Active Substance: ATENOLOL
     Indication: HYPERTENSION
     Dosage: 50 MG, QD
     Route: 048
     Dates: start: 1977
  10. OMEPRAZOLE. [Suspect]
     Active Substance: OMEPRAZOLE
     Indication: PRODUCT USED FOR UNKNOWN INDICATION
     Dosage: 10 MG, QD
     Route: 048

REACTIONS (1)
  - Pemphigoid [Recovering/Resolving]

NARRATIVE: CASE EVENT DATE: 20170120
